FAERS Safety Report 21107541 (Version 2)
Quarter: 2025Q3

REPORT INFORMATION
  Report Type: Other
  Country: US (occurrence: None)
  Receive Date: 20220720
  Receipt Date: 20250814
  Transmission Date: 20251020
  Serious: Yes (Hospitalization, Other)
  Sender: DEXCEL LTD.
  Company Number: US-DEXPHARM-20221153

PATIENT
  Age: 53 Year
  Sex: Female

DRUGS (4)
  1. CHLORHEXIDINE [Suspect]
     Active Substance: CHLORHEXIDINE
  2. PROPAMIDINE [Suspect]
     Active Substance: PROPAMIDINE
  3. CHLORHEXIDINE [Suspect]
     Active Substance: CHLORHEXIDINE
  4. MILTEFOSINE [Suspect]
     Active Substance: MILTEFOSINE

REACTIONS (5)
  - Condition aggravated [Recovered/Resolved]
  - Burning sensation [Recovered/Resolved]
  - Pain [Recovered/Resolved]
  - Corneal neovascularisation [Recovered/Resolved]
  - Hypopyon [Recovered/Resolved]
